FAERS Safety Report 15027356 (Version 4)
Quarter: 2018Q3

REPORT INFORMATION
  Report Type: Report from Study
  Country: US (occurrence: US)
  Receive Date: 20180619
  Receipt Date: 20180903
  Transmission Date: 20181010
  Serious: Yes (Death, Life-Threatening, Hospitalization, Other)
  Sender: FDA-Public Use
  Company Number: US-HORIZON-PRE-0257-2018

PATIENT
  Age: 71 Year
  Sex: Female
  Weight: 55.79 kg

DRUGS (7)
  1. INCB039110 OR PLACEBO [Suspect]
     Active Substance: ITACITINIB
     Indication: GRAFT VERSUS HOST DISEASE
     Dates: start: 20180515, end: 20180517
  2. PREDNISONE. [Suspect]
     Active Substance: PREDNISONE
     Indication: GRAFT VERSUS HOST DISEASE
     Dosage: 30 MG BID
     Route: 048
     Dates: start: 20180503, end: 20180510
  3. VALCYTE [Suspect]
     Active Substance: VALGANCICLOVIR HYDROCHLORIDE
     Indication: PRODUCT USED FOR UNKNOWN INDICATION
     Dates: start: 20180504
  4. INCB039110 OR PLACEBO [Suspect]
     Active Substance: ITACITINIB
     Indication: GRAFT VERSUS HOST DISEASE
     Dates: start: 20160421, end: 20180514
  5. TACROLIMUS. [Suspect]
     Active Substance: TACROLIMUS
     Indication: PRODUCT USED FOR UNKNOWN INDICATION
     Dates: start: 20180512
  6. PREDNISONE. [Suspect]
     Active Substance: PREDNISONE
     Indication: GRAFT VERSUS HOST DISEASE
     Dosage: 45 MG BID
     Route: 048
     Dates: start: 20180426, end: 20180502
  7. PREDNISONE. [Suspect]
     Active Substance: PREDNISONE
     Indication: GRAFT VERSUS HOST DISEASE
     Dosage: 25 MG BID
     Route: 048
     Dates: start: 20180511

REACTIONS (5)
  - Muscular weakness [Not Recovered/Not Resolved]
  - Fall [Fatal]
  - Laceration [Recovering/Resolving]
  - Electrocardiogram abnormal [Recovering/Resolving]
  - Traumatic intracranial haemorrhage [Fatal]

NARRATIVE: CASE EVENT DATE: 20180515
